FAERS Safety Report 16933694 (Version 2)
Quarter: 2019Q4

REPORT INFORMATION
  Report Type: Spontaneous
  Country: NL (occurrence: NL)
  Receive Date: 20191018
  Receipt Date: 20191225
  Transmission Date: 20200122
  Serious: Yes (Other)
  Sender: FDA-Public Use
  Company Number: NL-TEVA-2019-NL-1123059

PATIENT
  Age: 61 Year
  Sex: Female
  Weight: 70 kg

DRUGS (3)
  1. NAPROXEN. [Suspect]
     Active Substance: NAPROXEN
     Indication: PROCEDURAL PAIN
     Dosage: 2X DD 500MG
     Dates: start: 20190909, end: 20190910
  2. MAAGZUURTABLET PANTOPRAZOL HTP (PANTOPRAZOL) MAAGSAPRESISTENTE TABLET, [Suspect]
     Active Substance: PANTOPRAZOLE SODIUM
     Indication: PROPHYLAXIS AGAINST GASTROINTESTINAL ULCER
     Dosage: 2XDD 1 TABLET 20 MG
     Dates: start: 20190909, end: 20190910
  3. VIT.C 80MG [Concomitant]

REACTIONS (2)
  - Diarrhoea haemorrhagic [Recovered/Resolved]
  - Dyspepsia [Recovered/Resolved]

NARRATIVE: CASE EVENT DATE: 20190909
